FAERS Safety Report 8867601 (Version 1)
Quarter: 2012Q4

REPORT INFORMATION
  Report Type: 
  Country: US (occurrence: US)
  Receive Date: 20121025
  Receipt Date: 20121025
  Transmission Date: 20130627
  Serious: No
  Sender: FDA-Public Use
  Company Number: US-AMGEN-USASP2012017487

PATIENT
  Sex: Male
  Weight: 71.66 kg

DRUGS (11)
  1. ENBREL [Suspect]
     Indication: PRODUCT USED FOR UNKNOWN INDICATION
     Dosage: 50 mg, qwk
     Route: 058
  2. ENBREL [Suspect]
  3. LORTAB                             /00607101/ [Concomitant]
     Dosage: UNK
  4. INDOMETHACIN                       /00003801/ [Concomitant]
     Dosage: 25 mg, UNK
  5. PREDNISONE [Concomitant]
     Dosage: 2.5 mg, UNK
  6. STOOL SOFTENER [Concomitant]
     Dosage: 100 mg, UNK
  7. CALCIUM 500+D [Concomitant]
     Dosage: UNK
  8. NEXIUM                             /01479302/ [Concomitant]
     Dosage: 40 mg, UNK
  9. FOLIC ACID [Concomitant]
     Dosage: 20 mg, UNK
  10. VITAMIN D2 [Concomitant]
     Dosage: 400 IU, UNK
  11. METHOTREXATE [Concomitant]
     Dosage: 2.5 mg, UNK

REACTIONS (1)
  - Pain in extremity [Unknown]
